FAERS Safety Report 4367550-8 (Version None)
Quarter: 2004Q2

REPORT INFORMATION
  Report Type: 
  Country: None (occurrence: None)
  Receive Date: 20040601
  Receipt Date: 20040429
  Transmission Date: 20050107
  Serious: Yes (Hospitalization)
  Sender: FDA-Public Use
  Company Number: DE-MERCK-0405DEU00016

PATIENT
  Age: 8 Year
  Sex: Male
  Weight: 30 kg

DRUGS (3)
  1. ALBUTEROL [Concomitant]
     Route: 065
  2. BUDESONIDE [Concomitant]
     Indication: ASTHMA
     Route: 065
     Dates: start: 20031201
  3. SINGULAIR [Suspect]
     Indication: ASTHMA
     Route: 048
     Dates: start: 20040419, end: 20040429

REACTIONS (3)
  - EPSTEIN-BARR VIRUS INFECTION [None]
  - HAEMATOMA [None]
  - PETECHIAE [None]
